FAERS Safety Report 9520234 (Version 1)
Quarter: 2013Q1

REPORT INFORMATION
  Report Type: Spontaneous
  Country: US (occurrence: None)
  Receive Date: 20130305
  Receipt Date: 20130305
  Transmission Date: 20140127
  Serious: No
  Sender: FDA-Public Use
  Company Number: 163-21880-12022702

PATIENT
  Age: 72 Year
  Sex: Female

DRUGS (1)
  1. REVLIMID (LENALIDOMIDE) (15 MILLIGRAM, CAPSULES) [Suspect]
     Indication: PLASMA CELL MYELOMA
     Dosage: 15MG, DAILY X 14 DAYS/OFF 7 DAYS
     Dates: start: 20120127

REACTIONS (2)
  - Hallucination [None]
  - Adverse drug reaction [None]
